FAERS Safety Report 7425198-2 (Version None)
Quarter: 2011Q2

REPORT INFORMATION
  Report Type: 
  Country: None (occurrence: None)
  Receive Date: 20110412
  Receipt Date: 20110330
  Transmission Date: 20111010
  Serious: Yes (Death, Hospitalization)
  Sender: FDA-Public Use
  Company Number: 2011000005

PATIENT
  Age: 71 Year
  Sex: Female

DRUGS (18)
  1. ERLOTINIB (ERLOTINIB) (TABLET) (ERLOTINIB) [Suspect]
     Indication: LUNG SQUAMOUS CELL CARCINOMA STAGE UNSPECIFIED
     Dosage: 75 MG, 1 IN 3 D, ORAL 75 MG, DAILY, ORAL 100 MG, DAILY, ORAL
     Route: 048
     Dates: start: 20090708, end: 20100721
  2. AMARYL [Concomitant]
  3. HUSTAZOL (CLOPERASTINE HYDROCHLORIDE) [Concomitant]
  4. BROCIN (WILD CHERRY BARK) [Concomitant]
  5. LOXONIN (LOXOPROFEN SODIUM) [Concomitant]
  6. SULPIRIDE (SULPIRIDE) [Concomitant]
  7. MEILAX (ETHYL LOFLAZEPATE) [Concomitant]
  8. KETOPROFEN [Concomitant]
  9. MINOCYCLINE HYDROCHLORIDE [Suspect]
     Dosage: 200 MG, QD, ORAL
     Route: 048
     Dates: start: 20091202, end: 20100512
  10. PRAVASTATIN [Concomitant]
  11. NAIXAN (NAPROXEN SODIUM) [Concomitant]
  12. MESITAT [Concomitant]
  13. RABEPRAZOLE SODIUM [Concomitant]
  14. VOLTAREN [Concomitant]
  15. BASEN (VOGLIBOSE) [Concomitant]
  16. MUCOSOLATE (AMBROXOL HYDROCHLORIDE) [Concomitant]
  17. ISOSORBIDE DINITRATE [Concomitant]
  18. PROCATEROL HCL [Concomitant]

REACTIONS (7)
  - PNEUMONIA VIRAL [None]
  - DIZZINESS [None]
  - DECREASED APPETITE [None]
  - DIARRHOEA [None]
  - INTERSTITIAL LUNG DISEASE [None]
  - RALES [None]
  - RASH [None]
